FAERS Safety Report 23209919 (Version 3)
Quarter: 2024Q1

REPORT INFORMATION
  Report Type: Spontaneous
  Country: US (occurrence: US)
  Receive Date: 20231121
  Receipt Date: 20240220
  Transmission Date: 20240410
  Serious: Yes (Other)
  Sender: FDA-Public Use
  Company Number: US-Calliditas-2023CAL01445

PATIENT
  Age: 71 Year
  Sex: Male
  Weight: 91.2 kg

DRUGS (1)
  1. TARPEYO [Suspect]
     Active Substance: BUDESONIDE
     Indication: IgA nephropathy
     Dosage: 16MG (4MG CAPSULES) ONCE DAILY
     Route: 048
     Dates: start: 20230615, end: 202401

REACTIONS (4)
  - Acne [Not Recovered/Not Resolved]
  - Rash [Recovered/Resolved]
  - Glaucoma [Unknown]
  - Arthralgia [Not Recovered/Not Resolved]
